FAERS Safety Report 7785667-2 (Version None)
Quarter: 2011Q3

REPORT INFORMATION
  Report Type: 
  Country: None (occurrence: None)
  Receive Date: 20110929
  Receipt Date: 20110929
  Transmission Date: 20111222
  Serious: Yes (Hospitalization)
  Sender: FDA-Public Use
  Company Number: None

PATIENT
  Age: 35 Year
  Sex: Female
  Weight: 64.863 kg

DRUGS (1)
  1. QUININE SULFATE [Suspect]
     Indication: MUSCLE SPASMS
     Dosage: 2 CAPSULES
     Route: 002
     Dates: start: 20110912, end: 20110922

REACTIONS (12)
  - SYNCOPE [None]
  - HYPERHIDROSIS [None]
  - EXTRASYSTOLES [None]
  - DIZZINESS [None]
  - FEELING OF BODY TEMPERATURE CHANGE [None]
  - ACTIVITIES OF DAILY LIVING IMPAIRED [None]
  - HYPOTENSION [None]
  - LIMB DISCOMFORT [None]
  - IMPAIRED DRIVING ABILITY [None]
  - PAIN IN EXTREMITY [None]
  - DYSPNOEA [None]
  - ARRHYTHMIA [None]
